FAERS Safety Report 5530321-0 (Version None)
Quarter: 2007Q4

REPORT INFORMATION
  Report Type: 
  Country: None (occurrence: None)
  Receive Date: 20071130
  Receipt Date: 20070522
  Transmission Date: 20080405
  Serious: No
  Sender: FDA-Public Use
  Company Number: A0652377A

PATIENT
  Age: 42 Year
  Sex: Female

DRUGS (12)
  1. TYKERB [Suspect]
     Indication: BREAST CANCER
     Dosage: 5TAB PER DAY
     Route: 048
     Dates: start: 20070413, end: 20070519
  2. AUGMENTIN '250' [Suspect]
     Indication: INFECTION
     Dosage: 1TAB TWICE PER DAY
     Route: 048
     Dates: start: 20070401, end: 20070501
  3. GEMZAR [Concomitant]
  4. EFFEXOR [Concomitant]
  5. LASIX [Concomitant]
  6. POTASSIUM CHLORIDE [Concomitant]
  7. RESTORIL [Concomitant]
  8. CELEBREX [Concomitant]
  9. NEURONTIN [Concomitant]
  10. CLARITIN-D [Concomitant]
  11. MOTRIN [Concomitant]
  12. TYLENOL [Concomitant]

REACTIONS (8)
  - DIARRHOEA [None]
  - DRUG INEFFECTIVE [None]
  - DYSPNOEA [None]
  - FATIGUE [None]
  - PAIN [None]
  - PYREXIA [None]
  - TACHYCARDIA [None]
  - VIRAL INFECTION [None]
